FAERS Safety Report 5505167-X (Version None)
Quarter: 2007Q4

REPORT INFORMATION
  Report Type: 
  Country: None (occurrence: None)
  Receive Date: 20071102
  Receipt Date: 20071025
  Transmission Date: 20080405
  Serious: Yes (Hospitalization)
  Sender: FDA-Public Use
  Company Number: JP-ASTRAZENECA-2007AP06770

PATIENT
  Age: 27 Year
  Sex: Female

DRUGS (4)
  1. DIPRIVAN [Suspect]
     Indication: SEDATION
     Route: 041
  2. MARCAINE [Suspect]
     Indication: SPINAL ANAESTHESIA
     Route: 037
  3. OXYTOCIN [Concomitant]
     Route: 041
  4. ERGOMETRINE MALEATE [Concomitant]
     Route: 042

REACTIONS (1)
  - PERIPARTUM CARDIOMYOPATHY [None]
